FAERS Safety Report 18845766 (Version 1)
Quarter: 2021Q1

REPORT INFORMATION
  Report Type: Other
  Country: GB (occurrence: GB)
  Receive Date: 20210203
  Receipt Date: 20210203
  Transmission Date: 20210419
  Serious: Yes (Hospitalization)
  Sender: FDA-Public Use
  Company Number: GB-CELLTRION INC.-2021GB001066

PATIENT

DRUGS (3)
  1. OCTASA [Concomitant]
     Active Substance: MESALAMINE
  2. PREDNISOLONE. [Concomitant]
     Active Substance: PREDNISOLONE
  3. REMSIMA [Suspect]
     Active Substance: INFLIXIMAB
     Indication: COLITIS ULCERATIVE
     Dosage: 480 MG
     Route: 042
     Dates: start: 20200206, end: 20200517

REACTIONS (1)
  - Acute interstitial pneumonitis [Recovering/Resolving]

NARRATIVE: CASE EVENT DATE: 20200517
